FAERS Safety Report 21455958 (Version 5)
Quarter: 2022Q4

REPORT INFORMATION
  Report Type: Report from Study
  Country: BR (occurrence: BR)
  Receive Date: 20221014
  Receipt Date: 20221228
  Transmission Date: 20230112
  Serious: Yes (Life-Threatening, Hospitalization)
  Sender: FDA-Public Use
  Company Number: BR-CELLTRION INC.-2022BR016683

PATIENT

DRUGS (2)
  1. INFLIXIMAB [Suspect]
     Active Substance: INFLIXIMAB
     Indication: Crohn^s disease
     Dosage: 1 AMPOULE EVERY 8 WEEKS
     Route: 042
     Dates: start: 20220913
  2. INFLIXIMAB [Suspect]
     Active Substance: INFLIXIMAB
     Dosage: 2.5 AMPOULES

REACTIONS (8)
  - Defaecation disorder [Unknown]
  - Hypotension [Unknown]
  - Female genital tract fistula [Unknown]
  - Gastrointestinal stoma complication [Unknown]
  - Fistula [Recovering/Resolving]
  - Abscess drainage [Recovering/Resolving]
  - Hidradenitis [Unknown]
  - Intentional dose omission [Unknown]

NARRATIVE: CASE EVENT DATE: 20220926
